FAERS Safety Report 9540101 (Version 1)
Quarter: 2013Q3

REPORT INFORMATION
  Report Type: Spontaneous
  Country: US (occurrence: US)
  Receive Date: 20130920
  Receipt Date: 20130920
  Transmission Date: 20140515
  Serious: Yes (Death, Other)
  Sender: FDA-Public Use
  Company Number: US-BAXTER-2013BAX036346

PATIENT
  Age: 31 Year
  Sex: Female

DRUGS (7)
  1. OSMITROL INJECTION (MANNITOL INJECTION, USP) [Suspect]
     Indication: BRAIN OEDEMA
     Route: 065
  2. WARFARIN [Concomitant]
     Indication: ATRIAL FIBRILLATION
     Route: 065
  3. DIGOXIN [Concomitant]
     Indication: PRODUCT USED FOR UNKNOWN INDICATION
     Route: 065
  4. QUINIDINE GLUCONATE [Concomitant]
     Indication: PRODUCT USED FOR UNKNOWN INDICATION
     Route: 065
  5. PENICILLIN [Concomitant]
     Indication: PRODUCT USED FOR UNKNOWN INDICATION
     Route: 065
  6. FUROSEMIDE [Concomitant]
     Indication: POLYURIA
     Route: 065
  7. DEXAMETHASONE [Concomitant]
     Indication: BRAIN OEDEMA
     Route: 042

REACTIONS (5)
  - Cerebral infarction [Fatal]
  - Renal failure acute [Recovering/Resolving]
  - Abdominal distension [Unknown]
  - Ileus [Unknown]
  - Hypotension [Unknown]
